FAERS Safety Report 21373166 (Version 1)
Quarter: 2022Q3

REPORT INFORMATION
  Report Type: Spontaneous
  Country: US (occurrence: US)
  Receive Date: 20220924
  Receipt Date: 20220924
  Transmission Date: 20221026
  Serious: No
  Sender: FDA-Public Use
  Company Number: US-CTI BIOPHARMA-2022US02920

PATIENT

DRUGS (2)
  1. VONJO [Suspect]
     Active Substance: PACRITINIB
     Indication: Myelofibrosis
     Dosage: 100 MILLIGRAM, BID
     Route: 048
     Dates: start: 20220511, end: 20220628
  2. VONJO [Suspect]
     Active Substance: PACRITINIB
     Dosage: 200 MG, BID
     Dates: start: 20220511

REACTIONS (5)
  - Blood blister [Recovering/Resolving]
  - Haematoma [Unknown]
  - Conjunctival haemorrhage [Recovering/Resolving]
  - Haemorrhage [Unknown]
  - Nausea [None]

NARRATIVE: CASE EVENT DATE: 20220628
